FAERS Safety Report 23714012 (Version 1)
Quarter: 2024Q2

REPORT INFORMATION
  Report Type: Spontaneous
  Country: FR (occurrence: FR)
  Receive Date: 20240405
  Receipt Date: 20240405
  Transmission Date: 20240716
  Serious: Yes (Other)
  Sender: FDA-Public Use
  Company Number: None

PATIENT
  Age: 69 Year
  Sex: Female

DRUGS (2)
  1. LENVATINIB [Suspect]
     Active Substance: LENVATINIB
     Indication: Endometrial adenocarcinoma
     Dosage: DOSE AND FREQUENCY UNKNOWN
     Route: 048
     Dates: start: 20231206, end: 20240117
  2. KEYTRUDA [Suspect]
     Active Substance: PEMBROLIZUMAB
     Indication: Endometrial adenocarcinoma
     Dosage: DOSE AND FREQUENCY UNKNOWN
     Route: 042
     Dates: start: 20231206, end: 20240117

REACTIONS (3)
  - Immune-mediated myocarditis [Not Recovered/Not Resolved]
  - Immune-mediated enterocolitis [Not Recovered/Not Resolved]
  - Immune-mediated thyroiditis [Not Recovered/Not Resolved]

NARRATIVE: CASE EVENT DATE: 20240213
